FAERS Safety Report 24907862 (Version 1)
Quarter: 2025Q1

REPORT INFORMATION
  Report Type: Spontaneous
  Country: DE (occurrence: DE)
  Receive Date: 20250131
  Receipt Date: 20250131
  Transmission Date: 20250408
  Serious: Yes (Death, Life-Threatening, Hospitalization, Other)
  Sender: TEVA
  Company Number: DE-EMA-DD-20180524-rakhievhpdd-105213

PATIENT
  Age: 73 Year
  Sex: Female
  Weight: 69 kg

DRUGS (39)
  1. CAPTOPRIL [Suspect]
     Active Substance: CAPTOPRIL
     Indication: Coronary artery disease
     Route: 048
     Dates: end: 20010714
  2. DIGOXIN [Suspect]
     Active Substance: DIGOXIN
     Indication: Coronary artery disease
     Route: 048
     Dates: start: 20010703, end: 20010714
  3. LASIX [Suspect]
     Active Substance: FUROSEMIDE
     Indication: Hypertension
     Dosage: DOSAGE TEXT: 120 MG, DOSE RANGED FROM 80 MG-120 MG DAILY
     Route: 042
     Dates: start: 20010703, end: 20010714
  4. PLAVIX [Suspect]
     Active Substance: CLOPIDOGREL BISULFATE
     Indication: Coronary artery disease
     Route: 048
     Dates: start: 20010704, end: 20010714
  5. METFORMIN [Suspect]
     Active Substance: METFORMIN HYDROCHLORIDE
     Indication: Diabetes mellitus
     Route: 048
     Dates: end: 20010714
  6. ZAROXOLYN [Suspect]
     Active Substance: METOLAZONE
     Indication: Hypertension
     Route: 048
     Dates: start: 20010712, end: 20010713
  7. PANTOZOL [Suspect]
     Active Substance: PANTOPRAZOLE SODIUM
     Indication: Prophylaxis
     Route: 048
     Dates: end: 20010714
  8. RAMIPRIL [Suspect]
     Active Substance: RAMIPRIL
     Indication: Coronary artery disease
     Route: 048
     Dates: end: 20010714
  9. ACETAMINOPHEN [Suspect]
     Active Substance: ACETAMINOPHEN
     Indication: Pain
     Route: 048
     Dates: start: 20010711, end: 20010711
  10. METOCLOPRAMIDE [Suspect]
     Active Substance: METOCLOPRAMIDE
     Indication: Nausea
     Route: 048
     Dates: start: 20010704, end: 20010712
  11. CIPROFLOXACIN [Suspect]
     Active Substance: CIPROFLOXACIN
     Indication: Cholecystitis
     Route: 048
     Dates: end: 20010628
  12. CIPROFLOXACIN [Suspect]
     Active Substance: CIPROFLOXACIN
     Indication: Cholecystitis
     Dosage: CIPROFLOXACIN HYDROCHLORIDE
     Route: 048
     Dates: start: 20010710, end: 20010711
  13. PREDNISONE [Suspect]
     Active Substance: PREDNISONE
     Indication: Dyspnoea
     Route: 042
     Dates: end: 20010703
  14. NOVODIGAL (.BETA.-ACETYLDIGOXIN) [Suspect]
     Active Substance: .BETA.-ACETYLDIGOXIN
     Indication: Coronary artery disease
     Dosage: DOSAGE TEXT: DOSE REPORTED AS 1 DOSE FORM
     Route: 048
  15. MELPERONE HYDROCHLORIDE [Suspect]
     Active Substance: MELPERONE HYDROCHLORIDE
     Indication: Restlessness
     Route: 048
     Dates: start: 20010706, end: 20010712
  16. FRAGMIN [Suspect]
     Active Substance: DALTEPARIN SODIUM
     Indication: Thrombosis prophylaxis
     Route: 058
     Dates: start: 20010703, end: 20010714
  17. SODIUM PERCHLORATE [Suspect]
     Active Substance: SODIUM PERCHLORATE
     Indication: Hyperthyroidism
     Route: 048
     Dates: end: 20010714
  18. PERENTEROL [Suspect]
     Active Substance: SACCHAROMYCES CEREVISIAE
     Indication: Diarrhoea
     Route: 048
     Dates: start: 20010711, end: 20010714
  19. ATORVASTATIN [Suspect]
     Active Substance: ATORVASTATIN
     Indication: Hyperlipidaemia
     Route: 048
     Dates: end: 20010703
  20. ASPIRIN [Suspect]
     Active Substance: ASPIRIN
     Indication: Coronary artery disease
     Route: 048
     Dates: end: 20010714
  21. MOLSIDOMINE [Suspect]
     Active Substance: MOLSIDOMINE
     Indication: Coronary artery disease
     Route: 048
     Dates: end: 20010714
  22. CARBIMAZOLE [Suspect]
     Active Substance: CARBIMAZOLE
     Indication: Hyperthyroidism
     Route: 048
     Dates: end: 20010714
  23. CLORAZEPATE DIPOTASSIUM [Suspect]
     Active Substance: CLORAZEPATE DIPOTASSIUM
     Indication: Restlessness
     Route: 048
     Dates: start: 20010710, end: 20010714
  24. LANTUS [Suspect]
     Active Substance: INSULIN GLARGINE
     Indication: Diabetes mellitus
     Route: 058
     Dates: end: 20010629
  25. NORVASC [Suspect]
     Active Substance: AMLODIPINE BESYLATE
     Indication: Coronary artery disease
     Route: 048
     Dates: end: 20010714
  26. HALDOL [Suspect]
     Active Substance: HALOPERIDOL
     Indication: Restlessness
     Route: 048
     Dates: start: 20010713, end: 20010714
  27. ROCEPHIN [Suspect]
     Active Substance: CEFTRIAXONE SODIUM
     Indication: Pyrexia
     Dosage: DOSAGE TEXT: 1 G, BID
     Route: 042
     Dates: end: 20010703
  28. AMARYL [Suspect]
     Active Substance: GLIMEPIRIDE
     Indication: Diabetes mellitus
     Route: 048
     Dates: end: 20010703
  29. ISOSORBIDE MONONITRATE [Suspect]
     Active Substance: ISOSORBIDE MONONITRATE
     Indication: Coronary artery disease
     Route: 048
     Dates: start: 20010703, end: 20010714
  30. BISOPROLOL FUMARATE [Suspect]
     Active Substance: BISOPROLOL FUMARATE
     Indication: Coronary artery disease
     Route: 048
     Dates: end: 20010714
  31. PREDNISOLONE SODIUM SUCCINATE [Suspect]
     Active Substance: PREDNISOLONE SODIUM SUCCINATE
     Indication: Dyspnoea
     Route: 042
     Dates: end: 20010703
  32. DIAZEPAM [Suspect]
     Active Substance: DIAZEPAM
     Indication: Restlessness
     Route: 048
     Dates: end: 20010703
  33. AMPHOTERICIN B [Suspect]
     Active Substance: AMPHOTERICIN B
     Indication: Antifungal prophylaxis
     Route: 048
     Dates: end: 20010714
  34. AMPHOTERICIN B [Suspect]
     Active Substance: AMPHOTERICIN B
     Indication: Antifungal prophylaxis
     Route: 048
     Dates: start: 20010703, end: 20010714
  35. BROMAZEPAM [Concomitant]
     Active Substance: BROMAZEPAM
     Indication: Restlessness
     Route: 048
     Dates: start: 20010713, end: 20010714
  36. POTASSIUM [Concomitant]
     Active Substance: POTASSIUM
     Indication: Electrolyte imbalance
     Route: 048
     Dates: start: 20010703, end: 20010714
  37. GLIMEPIRIDE [Concomitant]
     Active Substance: GLIMEPIRIDE
     Indication: Diabetes mellitus
     Route: 048
     Dates: end: 20170703
  38. BISOPROLOL FUMARATE [Concomitant]
     Active Substance: BISOPROLOL FUMARATE
     Indication: Coronary artery disease
     Route: 048
     Dates: end: 20010714
  39. POTASSIUM CHLORIDE [Concomitant]
     Active Substance: POTASSIUM CHLORIDE
     Indication: Electrolyte imbalance
     Route: 048
     Dates: start: 20010703, end: 20010714

REACTIONS (16)
  - Multiple organ dysfunction syndrome [Fatal]
  - Hyperthyroidism [Fatal]
  - Blister [Fatal]
  - Respiratory disorder [Fatal]
  - Erythema [Fatal]
  - Hyperthyroidism [Fatal]
  - Restlessness [Fatal]
  - Dermatitis exfoliative [Unknown]
  - Toxic epidermal necrolysis [Fatal]
  - Cholecystitis [Fatal]
  - Cholelithiasis [Fatal]
  - Condition aggravated [Fatal]
  - Diarrhoea [Fatal]
  - Nausea [Fatal]
  - Restlessness [Fatal]
  - Electrolyte imbalance [Fatal]

NARRATIVE: CASE EVENT DATE: 20010704
